FAERS Safety Report 11087867 (Version 1)
Quarter: 2015Q2

REPORT INFORMATION
  Report Type: Spontaneous
  Country: IL (occurrence: None)
  Receive Date: 20150430
  Receipt Date: 20150430
  Transmission Date: 20150821
  Serious: Yes (Hospitalization)
  Sender: FDA-Public Use
  Company Number: 2015-000804

PATIENT
  Age: 59 Year
  Sex: Female

DRUGS (5)
  1. ACTONEL [Suspect]
     Active Substance: RISEDRONATE SODIUM
     Indication: OSTEOPOROSIS
     Dosage: 35 MG ONCE WEEKLY, OROPHARINGEAL
     Route: 049
     Dates: start: 200605, end: 201107
  2. AMLODIPINE [Concomitant]
     Active Substance: AMLODIPINE BESYLATE
  3. ACTONEL [Suspect]
     Active Substance: RISEDRONATE SODIUM
     Indication: OSTEOPOROSIS
     Dosage: 150 MG ONCE MONTHLY, ORAL
     Route: 048
     Dates: start: 201107, end: 201110
  4. ATORVASTATIN [Concomitant]
     Active Substance: ATORVASTATIN
  5. VITAMIN D (COLECALCIFEROL) [Concomitant]

REACTIONS (40)
  - Balance disorder [None]
  - Delusion [None]
  - Irritability [None]
  - Confusional state [None]
  - Dizziness [None]
  - Aggression [None]
  - Thinking abnormal [None]
  - Disorientation [None]
  - Anxiety [None]
  - Insomnia [None]
  - Back pain [None]
  - Urinary tract infection [None]
  - Chest pain [None]
  - Mental status changes [None]
  - Self injurious behaviour [None]
  - Decreased eye contact [None]
  - Asthenia [None]
  - Fatigue [None]
  - Dysuria [None]
  - Psychotic disorder [None]
  - Negativism [None]
  - Disturbance in attention [None]
  - Depressed mood [None]
  - Hallucination, auditory [None]
  - Constipation [None]
  - Myalgia [None]
  - Tension [None]
  - Indifference [None]
  - Gastrointestinal disorder [None]
  - Dyspepsia [None]
  - Oesophageal pain [None]
  - Conjunctivitis [None]
  - Memory impairment [None]
  - Restlessness [None]
  - Fear [None]
  - Abnormal behaviour [None]
  - Delusional perception [None]
  - Suspiciousness [None]
  - Cognitive disorder [None]
  - Hallucination, visual [None]

NARRATIVE: CASE EVENT DATE: 2011
